FAERS Safety Report 25860309 (Version 2)
Quarter: 2025Q4

REPORT INFORMATION
  Report Type: Report from Study
  Country: US (occurrence: US)
  Receive Date: 20250929
  Receipt Date: 20251002
  Transmission Date: 20260118
  Serious: No
  Sender: ABBVIE
  Company Number: US-ABBVIE-6475751

PATIENT
  Sex: Male

DRUGS (6)
  1. SKYRIZI [Suspect]
     Active Substance: RISANKIZUMAB-RZAA
     Indication: Crohn^s disease
     Dosage: WEEK 12  360MG/2.4ML
     Route: 058
     Dates: start: 20240906, end: 20240906
  2. SKYRIZI [Suspect]
     Active Substance: RISANKIZUMAB-RZAA
     Dosage: 360MG/2.4ML?WEEK 12(09/06/2024), AND EVERY 8 WEEKS
     Route: 058
  3. SKYRIZI [Suspect]
     Active Substance: RISANKIZUMAB-RZAA
     Dosage: 360MG/2.4ML
     Route: 058
     Dates: end: 202507
  4. SKYRIZI [Suspect]
     Active Substance: RISANKIZUMAB-RZAA
     Indication: Crohn^s disease
     Dosage: WEEK 0
     Route: 042
     Dates: start: 202406, end: 202406
  5. SKYRIZI [Suspect]
     Active Substance: RISANKIZUMAB-RZAA
     Indication: Crohn^s disease
     Dosage: WEEK 4
     Route: 042
     Dates: start: 202407, end: 202407
  6. SKYRIZI [Suspect]
     Active Substance: RISANKIZUMAB-RZAA
     Indication: Crohn^s disease
     Dosage: WEEK 8
     Route: 042
     Dates: start: 202408, end: 202408

REACTIONS (9)
  - Nausea [Unknown]
  - Abdominal pain [Not Recovered/Not Resolved]
  - Decreased appetite [Unknown]
  - Insomnia [Unknown]
  - Abdominal distension [Unknown]
  - Diarrhoea [Unknown]
  - Vomiting [Unknown]
  - Gastrointestinal sounds abnormal [Unknown]
  - Therapeutic response shortened [Unknown]
